FAERS Safety Report 6066386-X (Version None)
Quarter: 2009Q1

REPORT INFORMATION
  Report Type: 
  Country: None (occurrence: None)
  Receive Date: 20090205
  Receipt Date: 20090126
  Transmission Date: 20090719
  Serious: Yes (Other)
  Sender: FDA-Public Use
  Company Number: SE-PFIZER INC-2009162480

PATIENT

DRUGS (1)
  1. DALACIN [Suspect]
     Indication: ABDOMINAL ABSCESS
     Dates: start: 20080104, end: 20080113

REACTIONS (1)
  - GASTROINTESTINAL HAEMORRHAGE [None]
